FAERS Safety Report 15649556 (Version 2)
Quarter: 2018Q4

REPORT INFORMATION
  Report Type: Spontaneous
  Country: US (occurrence: US)
  Receive Date: 20181122
  Receipt Date: 20181206
  Transmission Date: 20190205
  Serious: No
  Sender: FDA-Public Use
  Company Number: US-ASTRAZENECA-2018SF42313

PATIENT
  Age: 816 Month
  Sex: Female
  Weight: 73.9 kg

DRUGS (3)
  1. TUDORZA PRESSAIR [Suspect]
     Active Substance: ACLIDINIUM BROMIDE
     Indication: CHRONIC OBSTRUCTIVE PULMONARY DISEASE
     Route: 055
     Dates: start: 201810
  2. TUDORZA PRESSAIR [Suspect]
     Active Substance: ACLIDINIUM BROMIDE
     Indication: CHRONIC OBSTRUCTIVE PULMONARY DISEASE
     Route: 055
  3. PROAIR HFA [Concomitant]
     Active Substance: ALBUTEROL SULFATE

REACTIONS (7)
  - Device malfunction [Unknown]
  - Hypersensitivity [Unknown]
  - Product dose omission [Unknown]
  - Circumstance or information capable of leading to device use error [Unknown]
  - Off label use [Unknown]
  - Intentional device misuse [Unknown]
  - Insurance issue [Unknown]

NARRATIVE: CASE EVENT DATE: 201810
